FAERS Safety Report 5370654-4 (Version None)
Quarter: 2007Q2

REPORT INFORMATION
  Report Type: 
  Country: None (occurrence: None)
  Receive Date: 20070622
  Receipt Date: 20070611
  Transmission Date: 20071010
  Serious: Yes (Hospitalization, Other)
  Sender: FDA-Public Use
  Company Number: PAR_01606_2007

PATIENT
  Age: 34 Year
  Sex: Male

DRUGS (2)
  1. CLOZAPINE [Suspect]
     Indication: SCHIZOAFFECTIVE DISORDER
     Dates: start: 19950101
  2. VALPROATE SODIUM [Concomitant]

REACTIONS (4)
  - ALCOHOLISM [None]
  - PANCREATITIS [None]
  - PRIAPISM [None]
  - TREATMENT NONCOMPLIANCE [None]
